FAERS Safety Report 13690772 (Version 3)
Quarter: 2017Q4

REPORT INFORMATION
  Report Type: Spontaneous
  Country: US (occurrence: US)
  Receive Date: 20170626
  Receipt Date: 20171226
  Transmission Date: 20180320
  Serious: Yes (Other)
  Sender: FDA-Public Use
  Company Number: US-CLOVIS ONCOLOGY-CLO-2017-000455

PATIENT
  Age: 75 Year
  Sex: Female

DRUGS (2)
  1. RUBRACA [Suspect]
     Active Substance: RUCAPARIB CAMSYLATE
     Indication: BREAST CANCER
  2. RUBRACA [Suspect]
     Active Substance: RUCAPARIB CAMSYLATE
     Indication: OVARIAN CANCER
     Dosage: 600 MG, BID
     Route: 048
     Dates: start: 20170504

REACTIONS (13)
  - Fatigue [Unknown]
  - Abdominal discomfort [Unknown]
  - Tremor [Unknown]
  - Tumour marker increased [Unknown]
  - Endoscopy gastrointestinal [Unknown]
  - Dyspepsia [Recovering/Resolving]
  - Hiccups [Unknown]
  - Haemoglobin decreased [Unknown]
  - Gastroenteritis viral [Recovered/Resolved]
  - Dyspnoea [Recovering/Resolving]
  - Neuropathy peripheral [Not Recovered/Not Resolved]
  - Vomiting [Not Recovered/Not Resolved]
  - Drug dose omission [Unknown]

NARRATIVE: CASE EVENT DATE: 2017
